FAERS Safety Report 9616630 (Version 2)
Quarter: 2014Q1

REPORT INFORMATION
  Report Type: Report from Study
  Country: US (occurrence: US)
  Receive Date: 20131011
  Receipt Date: 20140123
  Transmission Date: 20141002
  Serious: Yes (Other)
  Sender: FDA-Public Use
  Company Number: PHEH2013US020988

PATIENT
  Sex: Female

DRUGS (1)
  1. GILENYA [Suspect]
     Indication: MULTIPLE SCLEROSIS
     Dosage: 0.5 MG, QD
     Route: 048
     Dates: start: 20111010

REACTIONS (5)
  - Invasive ductal breast carcinoma [Unknown]
  - Breast calcifications [Unknown]
  - Metastases to liver [Unknown]
  - Metastases to bone [Unknown]
  - Lymphadenopathy [Unknown]
